FAERS Safety Report 11341550 (Version 1)
Quarter: 2015Q3

REPORT INFORMATION
  Report Type: Spontaneous
  Country: US (occurrence: None)
  Receive Date: 20150629
  Receipt Date: 20150629
  Transmission Date: 20151125
  Serious: No
  Sender: FDA-Public Use
  Company Number: A-NJ2015-111305

PATIENT
  Age: 87 Year
  Sex: Female

DRUGS (5)
  1. DIGOXIN (DIGOXIN) [Concomitant]
     Active Substance: DIGOXIN
  2. OPSUMIT [Suspect]
     Active Substance: MACITENTAN
     Indication: COR PULMONALE CHRONIC
     Route: 048
     Dates: start: 20141210
  3. ADCIRCA [Concomitant]
     Active Substance: TADALAFIL
  4. OMEPRAZOLE (OMEPRAZOLE) [Concomitant]
     Active Substance: OMEPRAZOLE
  5. XARELTO [Concomitant]
     Active Substance: RIVAROXABAN

REACTIONS (3)
  - Nasal congestion [None]
  - Peripheral swelling [None]
  - Anaemia [None]

NARRATIVE: CASE EVENT DATE: 20141211
